FAERS Safety Report 14556945 (Version 1)
Quarter: 2018Q1

REPORT INFORMATION
  Report Type: Spontaneous
  Country: IT (occurrence: IT)
  Receive Date: 20180221
  Receipt Date: 20180221
  Transmission Date: 20180509
  Serious: Yes (Life-Threatening, Hospitalization, Other)
  Sender: FDA-Public Use
  Company Number: IT-MACLEODS PHARMACEUTICALS US LTD-MAC2018010298

PATIENT

DRUGS (3)
  1. METFORMIN HYDROCHLORIDE. [Suspect]
     Active Substance: METFORMIN HYDROCHLORIDE
     Indication: SUICIDE ATTEMPT
     Dosage: 95.2 G, 1 TOTAL
     Route: 048
  2. INSULIN GLARGINE [Suspect]
     Active Substance: INSULIN GLARGINE
     Indication: SUICIDE ATTEMPT
     Dosage: 40 IU, 1 TOTAL
     Route: 048
  3. PIOGLITAZONE. [Suspect]
     Active Substance: PIOGLITAZONE
     Indication: SUICIDE ATTEMPT
     Dosage: 1.6 G, 1 TOTAL
     Route: 048

REACTIONS (11)
  - Intentional overdose [Recovered/Resolved]
  - Shock [Recovered/Resolved]
  - Condition aggravated [Recovered/Resolved]
  - Tachypnoea [Recovered/Resolved]
  - Hypoglycaemia [Recovered/Resolved]
  - Toxicity to various agents [Recovered/Resolved]
  - Respiratory arrest [Recovered/Resolved]
  - Hypotension [Recovered/Resolved]
  - Metabolic acidosis [Recovered/Resolved]
  - Dehydration [Recovered/Resolved]
  - Unresponsive to stimuli [Recovered/Resolved]
